FAERS Safety Report 10204058 (Version 1)
Quarter: 2014Q2

REPORT INFORMATION
  Report Type: Report from Study
  Country: CA (occurrence: CA)
  Receive Date: 20140529
  Receipt Date: 20140529
  Transmission Date: 20141212
  Serious: Yes (Other)
  Sender: FDA-Public Use
  Company Number: CA-ABBVIE-14K-028-1240635-00

PATIENT
  Age: 56 Year
  Sex: Male
  Weight: 113.5 kg

DRUGS (4)
  1. KALETRA 200/50 [Suspect]
     Indication: HIV INFECTION
     Dosage: UNIT DOSE:2 TABLETS OF 200MG/50MG=400MG/100MG
     Route: 048
  2. CLONAZEPAM [Concomitant]
     Indication: SLEEP DISORDER
     Dosage: AT BEDTIME
     Route: 048
  3. ELAVIL [Concomitant]
     Indication: SLEEP DISORDER
     Dosage: AT BEDTIME
     Route: 048
  4. ZOPICLONE [Concomitant]
     Indication: SLEEP DISORDER
     Dosage: AT BEDTIME
     Route: 048

REACTIONS (12)
  - Cardiac failure [Unknown]
  - Pneumonia [Recovered/Resolved]
  - Pneumonia [Recovered/Resolved]
  - Malaise [Recovered/Resolved]
  - Premature ageing [Recovered/Resolved]
  - Nasopharyngitis [Recovered/Resolved]
  - Spinal pain [Unknown]
  - Nasopharyngitis [Recovered/Resolved]
  - Weight decreased [Recovered/Resolved]
  - Type 2 diabetes mellitus [Unknown]
  - Asthenia [Recovered/Resolved]
  - Myalgia [Unknown]
